FAERS Safety Report 20457929 (Version 2)
Quarter: 2022Q4

REPORT INFORMATION
  Report Type: Spontaneous
  Country: GB (occurrence: GB)
  Receive Date: 20220210
  Receipt Date: 20221222
  Transmission Date: 20230113
  Serious: Yes (Other)
  Sender: FDA-Public Use
  Company Number: GB-BAXTER-2020BAX017657

PATIENT
  Age: 51 Year
  Sex: Male
  Weight: 53 kg

DRUGS (97)
  1. DOMPERIDONE [Suspect]
     Active Substance: DOMPERIDONE
     Indication: Supportive care
     Dosage: 8 MILLIGRAM, ONCE A DAY
     Route: 048
     Dates: start: 20200825
  2. DOMPERIDONE [Suspect]
     Active Substance: DOMPERIDONE
     Dosage: 30 MG, QD, 30 MG, QD (PRN (30 MG,1 D))
     Route: 048
     Dates: start: 20200825
  3. ONDANSETRON [Suspect]
     Active Substance: ONDANSETRON
     Indication: Supportive care
     Dosage: 16 MILLIGRAM, ONCE A DAY(16 MG, QD (FOR 3 DAYS (ORODISPERSIBLE FILM)
     Route: 048
     Dates: start: 20200825
  4. CALCIUM CARBONATE\CHOLECALCIFEROL [Suspect]
     Active Substance: CALCIUM CARBONATE\CHOLECALCIFEROL
     Indication: Mineral supplementation
     Dosage: 1 DOSAGE FORM, ONCE A DAY(1 DF (TABLET(1D); 1DF) (1 DOSAGE FORMS) (1 DOSAGE FORMS,1 IN 1 D) )
     Route: 048
  5. CALCIUM CARBONATE\CHOLECALCIFEROL [Suspect]
     Active Substance: CALCIUM CARBONATE\CHOLECALCIFEROL
     Dosage: 2 DOSAGE FORM, ONCE A DAY
     Route: 065
  6. APREPITANT [Suspect]
     Active Substance: APREPITANT
     Indication: Supportive care
     Dosage: 1 DOSAGE FORM, ONCE A DAY
     Route: 065
  7. APREPITANT [Suspect]
     Active Substance: APREPITANT
     Indication: Mineral supplementation
     Dosage: 80 MILLIGRAM(CAPSULE, HARD (80 MG) )
     Route: 065
     Dates: start: 20200826
  8. APREPITANT [Suspect]
     Active Substance: APREPITANT
     Dosage: 125 MG, (D1 (125 MG)/125 MG, 1X; IN TOTAL/D1)
     Route: 065
     Dates: start: 20200825
  9. APREPITANT [Suspect]
     Active Substance: APREPITANT
     Dosage: 80 MILLIGRAM(CAPSULE, HARD (80 MG) )
     Route: 065
     Dates: start: 20100825
  10. APREPITANT [Suspect]
     Active Substance: APREPITANT
     Dosage: 125 MILLIGRAM, ONCE A DAY
     Route: 065
     Dates: start: 20200825
  11. ASCORBIC ACID [Suspect]
     Active Substance: ASCORBIC ACID
     Indication: Product used for unknown indication
     Dosage: UNK
     Route: 065
  12. BIOTIN [Suspect]
     Active Substance: BIOTIN
     Indication: Product used for unknown indication
     Dosage: UNK
     Route: 065
  13. CALCIUM\CHOLECALCIFEROL [Suspect]
     Active Substance: CALCIUM\CHOLECALCIFEROL
     Indication: Mineral supplementation
     Dosage: 1 DOSAGE FORM, ONCE A DAY
     Route: 065
  14. CALCIUM\CHOLECALCIFEROL [Suspect]
     Active Substance: CALCIUM\CHOLECALCIFEROL
     Dosage: 8 DOSAGE FORM, ONCE A DAY, 8 (DF),QD
     Route: 065
  15. CALCIUM\CHOLECALCIFEROL [Suspect]
     Active Substance: CALCIUM\CHOLECALCIFEROL
     Dosage: 2 DOSAGE FORM, ONCE A DAY(2 DF, QD (2 DF, QD (TABLET), TABLET 2UNK) )
     Route: 065
  16. CALCIUM [Suspect]
     Active Substance: CALCIUM
     Indication: Mineral supplementation
     Dosage: ONCE A DAY
     Route: 048
  17. CALCIUM [Suspect]
     Active Substance: CALCIUM
     Dosage: 8 DOSAGE FORM, ONCE A DAY
     Route: 065
  18. CALCIUM [Suspect]
     Active Substance: CALCIUM
     Dosage: 1 DOSAGE FORM, ONCE A DAY
     Route: 048
  19. CALCIUM [Suspect]
     Active Substance: CALCIUM
     Dosage: 2 DOSAGE FORM, ONCE A DAY(2 DF, QD (TABLET), TABLET 2UNK)
     Route: 065
  20. CALCIUM [Suspect]
     Active Substance: CALCIUM
     Dosage: UNK UNK, QD;
     Route: 065
  21. CALCIUM [Suspect]
     Active Substance: CALCIUM
     Dosage: 8 DF, QD
     Route: 065
  22. CALCIUM [Suspect]
     Active Substance: CALCIUM
     Dosage: UNK UNK, QD;
     Route: 048
  23. CALCIUM [Suspect]
     Active Substance: CALCIUM
     Dosage: 1 DOSAGE FORM
     Route: 048
  24. CALCIUM [Suspect]
     Active Substance: CALCIUM
     Dosage: UNK, QD (1 UNK, QD )
     Route: 065
  25. CALCIUM [Suspect]
     Active Substance: CALCIUM
     Dosage: UNK, ONCE A DAY
     Route: 065
  26. CALCIUM [Suspect]
     Active Substance: CALCIUM
     Dosage: 1 DOSAGE FORM
     Route: 065
  27. CALCIUM [Suspect]
     Active Substance: CALCIUM
     Dosage: 8 DOSAGE FORM
     Route: 065
  28. CALCIUM [Suspect]
     Active Substance: CALCIUM
     Dosage: 1 DOSAGE FORM, ONCE A DAY
     Route: 065
  29. CALCIUM [Suspect]
     Active Substance: CALCIUM
     Dosage: 2 DOSAGE FORM
     Route: 065
  30. CALCIUM [Suspect]
     Active Substance: CALCIUM
     Dosage: UNK, QD, (UNK UNK, QD
     Route: 048
  31. CALCIUM [Suspect]
     Active Substance: CALCIUM
     Dosage: UNK UNK, QD;
     Route: 065
  32. CALCIUM [Suspect]
     Active Substance: CALCIUM
     Dosage: 8 DOSAGE FORM, ONCE A DAY
     Route: 065
  33. TRIBASIC CALCIUM PHOSPHATE [Suspect]
     Active Substance: TRIBASIC CALCIUM PHOSPHATE
     Indication: Mineral supplementation
     Dosage: UNK
     Route: 065
  34. TRIBASIC CALCIUM PHOSPHATE [Suspect]
     Active Substance: TRIBASIC CALCIUM PHOSPHATE
     Dosage: 2 DOSAGE FORM
     Route: 065
  35. TRIBASIC CALCIUM PHOSPHATE [Suspect]
     Active Substance: TRIBASIC CALCIUM PHOSPHATE
     Dosage: 2 DOSAGE FORM
     Route: 065
  36. CALCIUM CARBONATE [Suspect]
     Active Substance: CALCIUM CARBONATE
     Indication: Mineral supplementation
     Dosage: UNK
     Route: 065
  37. CALCIUM CARBONATE [Suspect]
     Active Substance: CALCIUM CARBONATE
     Dosage: 8 DOSAGE FORM
     Route: 065
  38. CALCIUM CARBONATE [Suspect]
     Active Substance: CALCIUM CARBONATE
     Dosage: 2 DOSAGE FORM
     Route: 065
  39. CALCIUM PANTOTHENATE [Suspect]
     Active Substance: CALCIUM PANTOTHENATE
     Indication: Product used for unknown indication
     Dosage: UNK
     Route: 065
  40. CISPLATIN [Suspect]
     Active Substance: CISPLATIN
     Indication: Germ cell neoplasm
     Dosage: 79 MG,IN 1 LITER (NOT SPECIFIED) (79 MG)
     Route: 065
     Dates: start: 20200825
  41. CHOLECALCIFEROL [Suspect]
     Active Substance: CHOLECALCIFEROL
     Indication: Mineral supplementation
     Dosage: 8 DOSAGE FORM, ONCE A DAY
     Route: 065
  42. CHOLECALCIFEROL [Suspect]
     Active Substance: CHOLECALCIFEROL
     Dosage: 1 DOSAGE FORM, ONCE A DAY(1 DF, QD, (QD(UNK, QD, (UNK UNK, QD) )1 DF, QD 0
     Route: 048
  43. CHOLECALCIFEROL [Suspect]
     Active Substance: CHOLECALCIFEROL
     Dosage: 2 DOSAGE FORM, ONCE A DAY
     Route: 065
  44. CHOLECALCIFEROL [Suspect]
     Active Substance: CHOLECALCIFEROL
     Dosage: UNK UNK, QD;
     Route: 065
  45. CHOLECALCIFEROL [Suspect]
     Active Substance: CHOLECALCIFEROL
     Dosage: 1 DOSAGE FORM, ONCE A DAY
     Route: 065
  46. CHOLECALCIFEROL [Suspect]
     Active Substance: CHOLECALCIFEROL
     Dosage: 1 DOSAGE FORM, ONCE A DAY
     Route: 065
  47. CHOLECALCIFEROL [Suspect]
     Active Substance: CHOLECALCIFEROL
     Dosage: 8 DOSAGE FORM, ONCE A DAY
     Route: 065
  48. CYANOCOBALAMIN [Suspect]
     Active Substance: CYANOCOBALAMIN
     Indication: Product used for unknown indication
     Dosage: 1 DOSAGE FORM, ONCE A DAY
     Route: 065
  49. CUPRIC SULFATE ANHYDROUS [Suspect]
     Active Substance: CUPRIC SULFATE ANHYDROUS
     Indication: Product used for unknown indication
     Dosage: 1 DOSAGE FORM, ONCE A DAY
     Route: 065
  50. DEXAMETHASONE [Suspect]
     Active Substance: DEXAMETHASONE
     Indication: Supportive care
     Dosage: 30 MILLIGRAM, ONCE A DAY(30 MG, QD (30 MG,1 D))
     Route: 048
     Dates: start: 20200825
  51. DEXAMETHASONE [Suspect]
     Active Substance: DEXAMETHASONE
     Dosage: 8 MILLIGRAM, ONCE A DAY(8 MG, 1X/DAY ))
     Route: 048
     Dates: start: 20200825
  52. DOMPERIDONE MALEATE [Suspect]
     Active Substance: DOMPERIDONE MALEATE
     Indication: Supportive care
     Dosage: 8 MILLIGRAM, ONCE A DAY
     Route: 065
     Dates: start: 20200825
  53. ENSURE [Suspect]
     Active Substance: AMINO ACIDS\DEXTROSE\ELECTROLYTES NOS\SOYBEAN OIL\VITAMINS
     Indication: Nutritional supplementation
     Dosage: 1 DOSAGE FORM, ONCE A DAY(ONCE A DAY, TABLETS 3UNK)
     Route: 065
  54. ENSURE [Suspect]
     Active Substance: AMINO ACIDS\DEXTROSE\ELECTROLYTES NOS\SOYBEAN OIL\VITAMINS
     Dosage: 3 DOSAGE FORM(3 DOSAGE FORM, TABLETS 3)
     Route: 065
  55. ETOPOSIDE [Suspect]
     Active Substance: ETOPOSIDE
     Indication: Germ cell neoplasm
     Dosage: 360 MILLIGRAM, ONCE A DAY
     Route: 065
     Dates: start: 202007
  56. ETOPOSIDE [Suspect]
     Active Substance: ETOPOSIDE
     Dosage: 360 MG (IN 1 LITER 2 BAGS (360 MG))
     Route: 065
     Dates: start: 20200825, end: 20200825
  57. ERGOCALCIFEROL [Suspect]
     Active Substance: ERGOCALCIFEROL
     Indication: Product used for unknown indication
     Dosage: UNK
     Route: 065
  58. SOYBEAN OIL [Suspect]
     Active Substance: SOYBEAN OIL
     Indication: Product used for unknown indication
     Dosage: UNK
     Route: 065
  59. FERROUS SULFATE [Suspect]
     Active Substance: FERROUS SULFATE
     Indication: Product used for unknown indication
     Dosage: 1 DOSAGE FORM
     Route: 065
  60. FOLIC ACID [Suspect]
     Active Substance: FOLIC ACID
     Indication: Product used for unknown indication
     Dosage: 1 DOSAGE FORM
     Route: 065
  61. LINOLEIC ACID [Suspect]
     Active Substance: LINOLEIC ACID
     Indication: Product used for unknown indication
     Dosage: 3 DOSAGE FORM
     Route: 065
  62. MANGANESE CHLORIDE [Suspect]
     Active Substance: MANGANESE CHLORIDE
     Indication: Product used for unknown indication
     Dosage: 1 DOSAGE FORM
     Route: 065
  63. NAUZELIN [Suspect]
     Active Substance: DOMPERIDONE
     Indication: Supportive care
     Dosage: 8 MILLIGRAM, ONCE A DAY
     Route: 048
     Dates: start: 20200825
  64. NAUZELIN [Suspect]
     Active Substance: DOMPERIDONE
     Dosage: 30 MILLIGRAM, ONCE A DAY(30 MILLIGRAM, QD (30 MG, QD (PRN (30 MG,1 D)) (30 MG,1 IN 1 D))
     Route: 048
     Dates: start: 20200825
  65. NICOTINE [Suspect]
     Active Substance: NICOTINE
     Indication: Drug therapy
     Dosage: 21 MILLIGRAM, ONCE A DAY (PATCH, EVERY 24 HOURS)
     Route: 065
  66. NICOTINAMIDE [Suspect]
     Active Substance: NIACINAMIDE
     Indication: Product used for unknown indication
     Dosage: 1 MILLIGRAM, ONCE A DAY
     Route: 065
  67. UNSPECIFIED INGREDIENT [Suspect]
     Active Substance: UNSPECIFIED INGREDIENT
     Indication: Nutritional supplementation
     Dosage: 1 DOSAGE FORM, ONCE A DAY
     Route: 065
  68. UNSPECIFIED INGREDIENT [Suspect]
     Active Substance: UNSPECIFIED INGREDIENT
     Dosage: 3 DOSAGE FORM, ONCE A DAY
     Route: 065
  69. UNSPECIFIED INGREDIENT [Suspect]
     Active Substance: UNSPECIFIED INGREDIENT
     Dosage: UNK UNK, QD;
     Route: 065
  70. UNSPECIFIED INGREDIENT [Suspect]
     Active Substance: UNSPECIFIED INGREDIENT
     Dosage: UNK UNK, QD
     Route: 065
  71. UNSPECIFIED INGREDIENT [Suspect]
     Active Substance: UNSPECIFIED INGREDIENT
     Dosage: 3 DF TABLETS 3UNK
     Route: 065
  72. UNSPECIFIED INGREDIENT [Suspect]
     Active Substance: UNSPECIFIED INGREDIENT
     Dosage: UNK UNK, QD;
     Route: 065
  73. PHENYLBUTAZONE [Suspect]
     Active Substance: PHENYLBUTAZONE
     Indication: Hypovitaminosis
     Dosage: 300 MILLIGRAM, ONCE A DAY,QD
     Route: 065
  74. PHYTONADIONE [Suspect]
     Active Substance: PHYTONADIONE
     Indication: Product used for unknown indication
     Dosage: 1 DOSAGE FORM, ONCE A DAY
     Route: 065
  75. POTASSIUM CHLORIDE [Suspect]
     Active Substance: POTASSIUM CHLORIDE
     Indication: Product used for unknown indication
     Dosage: 1 DOSAGE FORM, ONCE A DAY
     Route: 065
  76. POTASSIUM CITRATE [Suspect]
     Active Substance: POTASSIUM CITRATE
     Indication: Product used for unknown indication
     Dosage: 1 DOSAGE FORM, ONCE A DAY
     Route: 065
  77. POTASSIUM IODIDE [Suspect]
     Active Substance: POTASSIUM IODIDE
     Indication: Product used for unknown indication
     Dosage: 1 DOSAGE FORM, ONCE A DAY
     Route: 065
  78. PROPYPHENAZONE [Suspect]
     Active Substance: PROPYPHENAZONE
     Indication: Hypovitaminosis
     Dosage: 300 MILLIGRAM, ONCE A DAY,
     Route: 065
  79. PROPYPHENAZONE [Suspect]
     Active Substance: PROPYPHENAZONE
     Indication: Hypovitaminosis
  80. PYRIDOXINE HYDROCHLORIDE [Suspect]
     Active Substance: PYRIDOXINE HYDROCHLORIDE
     Indication: Product used for unknown indication
     Dosage: 1 DOSAGE FORM, ONCE A DAY
     Route: 065
  81. PROTEIN [Suspect]
     Active Substance: PROTEIN
     Indication: Product used for unknown indication
     Dosage: UNK
     Route: 065
  82. VITAMIN A PALMITATE [Suspect]
     Active Substance: VITAMIN A PALMITATE
     Indication: Product used for unknown indication
     Dosage: 1 DOSAGE FORM, ONCE A DAY
     Route: 065
  83. RIBOFLAVIN [Suspect]
     Active Substance: RIBOFLAVIN
     Indication: Product used for unknown indication
     Dosage: 1 DOSAGE FORM, ONCE A DAY
     Route: 065
  84. SODIUM CHLORIDE [Suspect]
     Active Substance: SODIUM CHLORIDE
     Indication: Medication dilution
     Dosage: 0.9 % (SODIUM CHLORIDE INTRAVENOUS INFUSION BP 0.9% W/V (0.9 %) 0
     Route: 042
     Dates: start: 20200825
  85. SODIUM POLYMETAPHOSPHATE [Suspect]
     Active Substance: SODIUM POLYMETAPHOSPHATE
     Indication: Product used for unknown indication
     Dosage: UNK
     Route: 065
  86. THIAMINE [Suspect]
     Active Substance: THIAMINE
     Indication: Hypovitaminosis
     Dosage: 1 DOSAGE FORM, ONCE A DAY(1 DF, QD, UNK, UNK, QD (1 DOSAGE FORMS,1 IN 1 D) )
     Route: 065
  87. THIAMINE [Suspect]
     Active Substance: THIAMINE
     Dosage: 300 MILLIGRAM, ONCE A DAY
     Route: 065
  88. THIAMINE MONONITRATE [Suspect]
     Active Substance: THIAMINE MONONITRATE
     Indication: Hypovitaminosis
     Dosage: 300 MILLIGRAM, ONCE A DAY
     Route: 065
  89. THIAMINE MONONITRATE [Suspect]
     Active Substance: THIAMINE MONONITRATE
     Indication: Hypovitaminosis
     Dosage: 300 MILLIGRAM, ONCE A DAY
     Route: 065
  90. .ALPHA.-TOCOPHEROL ACETATE [Suspect]
     Active Substance: .ALPHA.-TOCOPHEROL ACETATE
     Indication: Product used for unknown indication
     Dosage: UNK
     Route: 065
  91. ZINC SULFATE [Suspect]
     Active Substance: ZINC SULFATE
     Indication: Nutritional supplementation
     Dosage: 3 DOSAGE FORM(3 DF TABLETS 3UNK)
     Route: 065
  92. ZINC SULFATE [Suspect]
     Active Substance: ZINC SULFATE
     Dosage: 1 DOSAGE FORM, ONCE A DAY
     Route: 065
  93. ARCOXIA [Suspect]
     Active Substance: ETORICOXIB
     Indication: Product used for unknown indication
     Dosage: UNK
     Route: 065
  94. CALCIUM CARBONATE\CHOLECALCIFEROL [Suspect]
     Active Substance: CALCIUM CARBONATE\CHOLECALCIFEROL
     Indication: Mineral supplementation
     Dosage: 8 DOSAGE FORM
     Route: 065
  95. CALCIUM CARBONATE\CHOLECALCIFEROL [Suspect]
     Active Substance: CALCIUM CARBONATE\CHOLECALCIFEROL
     Dosage: 2 DOSAGE FORM
     Route: 065
  96. CALCIUM CARBONATE\CHOLECALCIFEROL [Suspect]
     Active Substance: CALCIUM CARBONATE\CHOLECALCIFEROL
     Dosage: 1 DOSAGE FORM
     Route: 065
  97. COCODAMOL [Suspect]
     Active Substance: ACETAMINOPHEN\CODEINE PHOSPHATE
     Indication: Product used for unknown indication
     Dosage: UNK
     Route: 065

REACTIONS (9)
  - Hypersensitivity [Recovered/Resolved]
  - Neck pain [Unknown]
  - Vitamin B12 deficiency [Unknown]
  - Oropharyngeal discomfort [Unknown]
  - Abdominal distension [Unknown]
  - Barrett^s oesophagus [Unknown]
  - Dyspepsia [Unknown]
  - Regurgitation [Unknown]
  - Eructation [Unknown]

NARRATIVE: CASE EVENT DATE: 20200825
